FAERS Safety Report 15158766 (Version 1)
Quarter: 2018Q3

REPORT INFORMATION
  Report Type: Spontaneous
  Country: US (occurrence: US)
  Receive Date: 20180718
  Receipt Date: 20180718
  Transmission Date: 20181010
  Serious: No
  Sender: FDA-Public Use
  Company Number: US-SA-2018SA191377

PATIENT
  Age: 65 Year
  Sex: Female

DRUGS (1)
  1. RENVELA [Suspect]
     Active Substance: SEVELAMER CARBONATE
     Dosage: 800 MG, TID

REACTIONS (3)
  - Blood phosphorus increased [Unknown]
  - Osteoporosis [Unknown]
  - Therapy cessation [Unknown]
